FAERS Safety Report 15775981 (Version 4)
Quarter: 2019Q1

REPORT INFORMATION
  Report Type: Spontaneous
  Country: US (occurrence: US)
  Receive Date: 20181231
  Receipt Date: 20190225
  Transmission Date: 20190417
  Serious: Yes (Other)
  Sender: FDA-Public Use
  Company Number: US-ASTELLAS-2018US054963

PATIENT
  Age: 91 Year
  Sex: Male

DRUGS (4)
  1. LYRICA [Concomitant]
     Active Substance: PREGABALIN
     Indication: PRODUCT USED FOR UNKNOWN INDICATION
     Dosage: UNK UNK, UNKNOWN FREQ.
     Route: 065
  2. XTANDI [Suspect]
     Active Substance: ENZALUTAMIDE
     Route: 048
     Dates: start: 20170924
  3. XTANDI [Suspect]
     Active Substance: ENZALUTAMIDE
     Route: 048
     Dates: start: 201803, end: 20181020
  4. XTANDI [Suspect]
     Active Substance: ENZALUTAMIDE
     Indication: PRODUCT USED FOR UNKNOWN INDICATION
     Route: 048
     Dates: start: 201701, end: 20170923

REACTIONS (9)
  - Prostatic specific antigen increased [Unknown]
  - Fatigue [Unknown]
  - Productive cough [Unknown]
  - Product size issue [Unknown]
  - Treatment noncompliance [Unknown]
  - Choking [Unknown]
  - Dysphagia [Unknown]
  - Dysphonia [Unknown]
  - Product physical issue [Unknown]

NARRATIVE: CASE EVENT DATE: 201809
